FAERS Safety Report 5777578 (Version 2)
Quarter: 2020Q3

REPORT INFORMATION
  Report Type: Report from Study
  Country: DE (occurrence: DE)
  Receive Date: 20050419
  Receipt Date: 20050524
  Transmission Date: 20201104
  Serious: Yes (Hospitalization)
  Sender: FDA-Public Use
  Company Number: DE-JNJFOC-20050402904

PATIENT
  Age: 71 Year
  Sex: Male

DRUGS (26)
  1. INFLIXIMAB [Suspect]
     Active Substance: INFLIXIMAB
     Indication: CACHEXIA
     Route: 042
  2. GEMCITABINE. [Suspect]
     Active Substance: GEMCITABINE
     Indication: CHEMOTHERAPY
     Dosage: 21 INFUSION TO DATE
     Route: 042
  3. FUROSEMIDE. [Concomitant]
     Active Substance: FUROSEMIDE
     Route: 049
  4. TRAMADOL HYDROCHLORIDE. [Concomitant]
     Active Substance: TRAMADOL HYDROCHLORIDE
     Route: 049
  5. PLACEBO [Suspect]
     Active Substance: UNSPECIFIED INGREDIENT
     Indication: CACHEXIA
     Route: 042
  6. PLACEBO [Suspect]
     Active Substance: UNSPECIFIED INGREDIENT
     Indication: CACHEXIA
     Route: 042
  7. PHENPROCOUMON [Concomitant]
     Active Substance: PHENPROCOUMON
     Route: 049
  8. INFLIXIMAB [Suspect]
     Active Substance: INFLIXIMAB
     Indication: CACHEXIA
     Route: 042
  9. DUROGESIC [Concomitant]
     Active Substance: FENTANYL
     Route: 062
  10. MEBEVERINE HYDROCHLORIDE [Concomitant]
     Active Substance: MEBEVERINE HYDROCHLORIDE
     Route: 049
  11. LOPERAMIDE HYDROCHLORIDE. [Concomitant]
     Active Substance: LOPERAMIDE HYDROCHLORIDE
     Route: 049
  12. AVELOX [Concomitant]
     Active Substance: MOXIFLOXACIN HYDROCHLORIDE
     Route: 049
  13. KALINOR (POTASSIUM CHLORIDE) [Concomitant]
     Active Substance: POTASSIUM CHLORIDE
     Route: 049
  14. PLACEBO [Suspect]
     Active Substance: UNSPECIFIED INGREDIENT
     Indication: CACHEXIA
     Route: 042
  15. MCP [Concomitant]
     Active Substance: METOCLOPRAMIDE HYDROCHLORIDE
     Route: 049
  16. INFLIXIMAB [Suspect]
     Active Substance: INFLIXIMAB
     Indication: CACHEXIA
     Route: 042
  17. INFLIXIMAB [Suspect]
     Active Substance: INFLIXIMAB
     Indication: CACHEXIA
     Route: 042
  18. PLACEBO [Suspect]
     Active Substance: UNSPECIFIED INGREDIENT
     Indication: CACHEXIA
     Route: 042
  19. PLACEBO [Suspect]
     Active Substance: UNSPECIFIED INGREDIENT
     Indication: CACHEXIA
     Route: 042
  20. PLACEBO [Suspect]
     Active Substance: UNSPECIFIED INGREDIENT
     Indication: CACHEXIA
     Route: 042
  21. DIGITOXIN [Concomitant]
     Active Substance: DIGITOXIN
     Route: 049
  22. NOVALGIN (DIPYRONE) [Concomitant]
     Active Substance: DIPYRONE
     Route: 049
  23. INFLIXIMAB [Suspect]
     Active Substance: INFLIXIMAB
     Indication: CACHEXIA
     Route: 042
  24. INFLIXIMAB [Suspect]
     Active Substance: INFLIXIMAB
     Indication: CACHEXIA
     Route: 042
  25. CAPTOPRIL. [Concomitant]
     Active Substance: CAPTOPRIL
     Route: 049
  26. BELOC ZOK (METOPROLOL SUCCINATE) [Concomitant]
     Active Substance: METOPROLOL SUCCINATE
     Route: 049

REACTIONS (5)
  - Pulmonary embolism [Recovering/Resolving]
  - Atrial fibrillation [Recovering/Resolving]
  - Cardiac failure [Recovering/Resolving]
  - Deep vein thrombosis [Recovering/Resolving]
  - Dyspnoea [Recovering/Resolving]

NARRATIVE: CASE EVENT DATE: 20050325
